FAERS Safety Report 6645697-0 (Version None)
Quarter: 2010Q1

REPORT INFORMATION
  Report Type: 
  Country: None (occurrence: None)
  Receive Date: 20100318
  Receipt Date: 20100318
  Transmission Date: 20100710
  Serious: No
  Sender: FDA-Public Use
  Company Number: None

PATIENT
  Age: 76 Year
  Sex: Female
  Weight: 66.6788 kg

DRUGS (1)
  1. THYROID TAB [Suspect]
     Indication: HYPOTHYROIDISM

REACTIONS (4)
  - DRUG HYPERSENSITIVITY [None]
  - INSOMNIA [None]
  - PRURITUS GENERALISED [None]
  - RASH [None]
